FAERS Safety Report 4969660-0 (Version None)
Quarter: 2006Q2

REPORT INFORMATION
  Report Type: 
  Country: None (occurrence: None)
  Receive Date: 20060411
  Receipt Date: 20060127
  Transmission Date: 20061013
  Serious: Yes (Hospitalization)
  Sender: FDA-Public Use
  Company Number: FR-BOEHRINGER INGELHEIM PHARMACEUTICALS, INC.-2006-FF-00071FF

PATIENT
  Age: 80 Year
  Sex: Male

DRUGS (9)
  1. JOSIR [Suspect]
     Indication: BENIGN PROSTATIC HYPERPLASIA
     Route: 048
     Dates: start: 20030101
  2. ATACAND [Concomitant]
     Route: 048
     Dates: start: 20030101
  3. BUFLOMEDIL [Concomitant]
     Route: 048
     Dates: start: 20030101
  4. SIMVASTATIN [Concomitant]
     Route: 048
     Dates: start: 20030101
  5. PAROXETINE HCL [Concomitant]
     Route: 048
     Dates: start: 20030101
  6. VASTAREL [Concomitant]
     Route: 048
     Dates: start: 20030101
  7. BUSPIRONE [Concomitant]
  8. CATACOL [Concomitant]
  9. TINSET [Concomitant]

REACTIONS (6)
  - BILIARY CYST [None]
  - HELICOBACTER GASTRITIS [None]
  - HICCUPS [None]
  - NEPHROCALCINOSIS [None]
  - RENAL CYST [None]
  - RESPIRATORY DISORDER [None]
